FAERS Safety Report 23858201 (Version 1)
Quarter: 2024Q2

REPORT INFORMATION
  Report Type: Spontaneous
  Country: US (occurrence: None)
  Receive Date: 20240514
  Receipt Date: 20240514
  Transmission Date: 20240716
  Serious: Yes (Hospitalization)
  Sender: FDA-Public Use
  Company Number: None

PATIENT
  Sex: Male

DRUGS (1)
  1. STELARA [Suspect]
     Active Substance: USTEKINUMAB
     Indication: Crohn^s disease
     Dosage: 90MG  EVERY 8 WEEKS  SUBCUTANEOUS?
     Route: 058
     Dates: start: 202403

REACTIONS (3)
  - Abdominal pain [None]
  - Constipation [None]
  - Vomiting [None]
